FAERS Safety Report 6943479-3 (Version None)
Quarter: 2010Q3

REPORT INFORMATION
  Report Type: 
  Country: None (occurrence: None)
  Receive Date: 20100823
  Receipt Date: 20100812
  Transmission Date: 20110219
  Serious: Yes (Other)
  Sender: FDA-Public Use
  Company Number: 2009EU003480

PATIENT
  Age: 14 Month
  Sex: Female
  Weight: 6.5 kg

DRUGS (6)
  1. PROGRAF [Suspect]
     Indication: LIVER TRANSPLANT
     Dosage: 0.075 MG/KG, BID, OTHER
  2. PROGRAF [Suspect]
     Indication: SMALL INTESTINE TRANSPLANT
     Dosage: 0.075 MG/KG, BID, OTHER
  3. BASILIXIMAB (BASILIXIMAB) [Suspect]
     Indication: LIVER TRANSPLANT
     Dosage: IV NOS
     Route: 042
  4. BASILIXIMAB (BASILIXIMAB) [Suspect]
     Indication: SMALL INTESTINE TRANSPLANT
     Dosage: IV NOS
     Route: 042
  5. METHYLPREDNISOLONE [Suspect]
     Indication: LIVER TRANSPLANT
     Dosage: 2 MG/KG, IV NOS
     Route: 042
  6. METHYLPREDNISOLONE [Suspect]
     Indication: SMALL INTESTINE TRANSPLANT
     Dosage: 2 MG/KG, IV NOS
     Route: 042

REACTIONS (12)
  - BRAIN OEDEMA [None]
  - CARDIAC FAILURE [None]
  - CEREBRAL DISORDER [None]
  - DRUG LEVEL ABOVE THERAPEUTIC [None]
  - INTRACRANIAL PRESSURE INCREASED [None]
  - MULTI-ORGAN FAILURE [None]
  - OFF LABEL USE [None]
  - PUPIL FIXED [None]
  - RENAL FAILURE [None]
  - RENAL IMPAIRMENT [None]
  - RESPIRATORY FAILURE [None]
  - SEPSIS [None]
